FAERS Safety Report 14157138 (Version 6)
Quarter: 2018Q1

REPORT INFORMATION
  Report Type: Spontaneous
  Country: US (occurrence: US)
  Receive Date: 20171103
  Receipt Date: 20180125
  Transmission Date: 20180508
  Serious: Yes (Other)
  Sender: FDA-Public Use
  Company Number: US-PFIZER INC-2017470997

PATIENT
  Age: 81 Year
  Sex: Female
  Weight: 52.61 kg

DRUGS (10)
  1. LEVOBUNOLOL HCL [Suspect]
     Active Substance: LEVOBUNOLOL HYDROCHLORIDE
     Dosage: UNK, 1X/DAY (OU Q AM)
     Route: 047
     Dates: start: 20090507
  2. BABY ASPIRIN [Concomitant]
     Active Substance: ASPIRIN
     Indication: CEREBROVASCULAR ACCIDENT PROPHYLAXIS
     Dosage: UNK
  3. LATANOPROST. [Suspect]
     Active Substance: LATANOPROST
     Indication: GLAUCOMA
     Dosage: UNK, 1X/DAY (OU QHS)
     Route: 047
     Dates: start: 20090507
  4. LATANOPROST. [Suspect]
     Active Substance: LATANOPROST
     Dosage: UNK
     Dates: start: 20121213
  5. LATANOPROST. [Suspect]
     Active Substance: LATANOPROST
     Dosage: 2 GTT, 1X/DAY (1 DROP IN BOTH EYES AT BEDTIME)
     Route: 047
     Dates: start: 20160304
  6. LEVOBUNOLOL HCL [Suspect]
     Active Substance: LEVOBUNOLOL HYDROCHLORIDE
     Indication: GLAUCOMA
     Dosage: 2 GTT, DAILY (1 DROP IN BOTH EYES)
     Route: 047
     Dates: start: 20100310
  7. LEVOBUNOLOL HCL [Suspect]
     Active Substance: LEVOBUNOLOL HYDROCHLORIDE
     Dosage: UNK
     Dates: start: 20111014
  8. LATANOPROST. [Suspect]
     Active Substance: LATANOPROST
     Dosage: 2 GTT, 1X/DAY (1 DROP IN BOTH EYES AT BEDTIME)
     Route: 047
     Dates: start: 20100310
  9. PRAVACOL [Concomitant]
     Active Substance: PRAVASTATIN SODIUM
     Indication: BLOOD CHOLESTEROL ABNORMAL
     Dosage: UNK
  10. LEVOBUNOLOL HCL [Suspect]
     Active Substance: LEVOBUNOLOL HYDROCHLORIDE
     Dosage: 2 GTT, DAILY(1 DROP BOTH EYES PER DAY)
     Route: 047
     Dates: start: 2012

REACTIONS (12)
  - Chapped lips [Not Recovered/Not Resolved]
  - Blindness unilateral [Recovered/Resolved]
  - Drug intolerance [Unknown]
  - Lip swelling [Not Recovered/Not Resolved]
  - Allergy to metals [Unknown]
  - Erythema [Not Recovered/Not Resolved]
  - Product quality issue [Unknown]
  - Condition aggravated [Not Recovered/Not Resolved]
  - Glossodynia [Recovered/Resolved]
  - Rash [Not Recovered/Not Resolved]
  - Reaction to preservatives [Unknown]
  - Sjogren^s syndrome [Unknown]

NARRATIVE: CASE EVENT DATE: 20100310
